FAERS Safety Report 9027918 (Version 1)
Quarter: 2013Q1

REPORT INFORMATION
  Report Type: Spontaneous
  Country: BR (occurrence: BR)
  Receive Date: 20130123
  Receipt Date: 20130123
  Transmission Date: 20140127
  Serious: Yes (Hospitalization)
  Sender: FDA-Public Use
  Company Number: BR-ASTRAZENECA-2013SE03796

PATIENT
  Age: 56 Year
  Sex: Female
  Weight: 60 kg

DRUGS (4)
  1. ARIMIDEX [Suspect]
     Indication: BREAST CANCER
     Route: 048
     Dates: start: 200805
  2. OSCAL D [Concomitant]
     Indication: BLOOD CALCIUM DECREASED
     Dosage: DAILY
     Route: 048
     Dates: start: 2010
  3. LEVOID [Concomitant]
     Indication: THYROIDECTOMY
     Dosage: DAILY
     Route: 048
     Dates: start: 201207
  4. ESCITALOPRAM [Concomitant]
     Indication: ANXIETY
     Dosage: DAILY
     Route: 048
     Dates: start: 201207

REACTIONS (4)
  - Thyroid disorder [Recovered/Resolved]
  - Blood calcium decreased [Recovered/Resolved]
  - Anxiety [Unknown]
  - Blood cholesterol increased [Unknown]
